FAERS Safety Report 19589970 (Version 2)
Quarter: 2021Q3

REPORT INFORMATION
  Report Type: Spontaneous
  Country: US (occurrence: US)
  Receive Date: 20210721
  Receipt Date: 20210721
  Transmission Date: 20211014
  Serious: No
  Sender: FDA-Public Use
  Company Number: US-SA-2021SA224364

PATIENT
  Age: 45 Year
  Sex: Male

DRUGS (1)
  1. LANTUS SOLOSTAR [Suspect]
     Active Substance: INSULIN GLARGINE
     Indication: TYPE 2 DIABETES MELLITUS
     Dosage: 72 IU, QD
     Route: 065

REACTIONS (6)
  - Injection site pain [Unknown]
  - Injury associated with device [Unknown]
  - Injection site swelling [Unknown]
  - Feeling abnormal [Unknown]
  - Injection site scar [Unknown]
  - Device issue [Unknown]
